FAERS Safety Report 8316791-3 (Version None)
Quarter: 2012Q2

REPORT INFORMATION
  Report Type: 
  Country: None (occurrence: None)
  Receive Date: 20120425
  Receipt Date: 20120402
  Transmission Date: 20120825
  Serious: Yes (Death)
  Sender: FDA-Public Use
  Company Number: 2012-154

PATIENT
  Age: 53 Year
  Sex: Male

DRUGS (24)
  1. FOLIC ACID [Concomitant]
  2. LEVOTHYROXINE SODIUM [Concomitant]
  3. DOCUSATE SODIUM (DOCUSATE SODIUM) [Concomitant]
  4. MIDODRINE HYDROCHLORIDE [Concomitant]
  5. ACETAMINOPHEN [Concomitant]
  6. ALBUTEROL [Concomitant]
  7. DELTASONE [Concomitant]
  8. SPIRIVA [Concomitant]
  9. TOVIAZ [Concomitant]
  10. DIAZEPAM [Concomitant]
  11. FAZACLO ODT [Suspect]
     Indication: SCHIZOAFFECTIVE DISORDER
     Dosage: 12.5 - 600 MG, QD, ORAL
     Route: 048
     Dates: start: 20080702, end: 20120326
  12. XOPENEX HFA (LEVOSALBUTAMOL TARTRATE) [Concomitant]
  13. ZEASORB-AF (MICONAZOLE NITRATE) [Concomitant]
  14. POLYETHYLENE GLYCOL [Concomitant]
  15. IPRATROPIUM BROMIDE [Concomitant]
  16. MILK OF MAGNESIA TAB [Concomitant]
  17. BENZTROPINE MESYLATE [Concomitant]
  18. HYDROCORTONE [Concomitant]
  19. ZYPREXA [Concomitant]
  20. DIVALPROEX (VALPROATE SEMISODIUM) [Concomitant]
  21. NAPROXEN [Concomitant]
  22. FLUPHENAZINE [Concomitant]
  23. LITHIUM CARBONATE [Concomitant]
  24. ANTACIDS [Concomitant]

REACTIONS (1)
  - MYOCARDIAL INFARCTION [None]
